FAERS Safety Report 4922348-4 (Version None)
Quarter: 2006Q1

REPORT INFORMATION
  Report Type: 
  Country: None (occurrence: None)
  Receive Date: 20060224
  Receipt Date: 20060213
  Transmission Date: 20060701
  Serious: Yes (Other)
  Sender: FDA-Public Use
  Company Number: US-MERCK-0602USA04531

PATIENT
  Age: 83 Year
  Sex: Male
  Weight: 68 kg

DRUGS (17)
  1. HYDRODIURIL [Concomitant]
     Indication: OEDEMA
     Route: 048
     Dates: start: 20030420
  2. ASPIRIN [Concomitant]
     Route: 065
     Dates: start: 20030120
  3. TYLENOL (CAPLET) [Concomitant]
     Indication: HEADACHE
     Route: 065
  4. VIOXX [Suspect]
     Indication: BACK PAIN
     Route: 048
     Dates: start: 20010417, end: 20040930
  5. VIOXX [Suspect]
     Route: 048
     Dates: start: 20010417, end: 20040930
  6. CYCLOCORT [Concomitant]
     Route: 065
  7. TRANSDERM SCOP [Concomitant]
     Route: 065
  8. MENTAX [Concomitant]
     Route: 065
  9. AVAPRO [Concomitant]
     Route: 065
  10. KLOR-CON [Concomitant]
     Route: 065
  11. DIPHENOXYLATE [Concomitant]
     Route: 065
  12. NEOMYCIN [Concomitant]
     Route: 065
  13. FLUOCINONIDE [Concomitant]
     Route: 065
  14. TOBRADEX [Concomitant]
     Route: 065
  15. PLAVIX [Concomitant]
     Indication: PROPHYLAXIS
     Route: 065
  16. DIOVAN [Concomitant]
     Indication: HYPERTENSION
     Route: 065
     Dates: start: 20030120
  17. NORVASC [Concomitant]
     Indication: HYPERTENSION
     Route: 065
     Dates: start: 19840101

REACTIONS (4)
  - CEREBROVASCULAR ACCIDENT [None]
  - CHEST PAIN [None]
  - DIZZINESS [None]
  - RETINAL VASCULAR OCCLUSION [None]
